FAERS Safety Report 21033945 (Version 1)
Quarter: 2022Q3

REPORT INFORMATION
  Report Type: Spontaneous
  Country: DE (occurrence: DE)
  Receive Date: 20220701
  Receipt Date: 20220701
  Transmission Date: 20221026
  Serious: Yes (Other)
  Sender: FDA-Public Use
  Company Number: DE-EMBRYOTOX-202104559

PATIENT
  Sex: Female
  Weight: 60 kg

DRUGS (7)
  1. VENLAFAXINE HCL [Suspect]
     Active Substance: VENLAFAXINE HYDROCHLORIDE
     Indication: Depression
     Route: 048
     Dates: start: 20210120, end: 20210731
  2. QUETIAPINE [Suspect]
     Active Substance: QUETIAPINE
     Indication: Depression
     Dosage: FREQ:8 H;75 [MG/D (25-25-25) ]
     Route: 048
     Dates: start: 20210323, end: 20210702
  3. LITHIUM CARBONATE [Suspect]
     Active Substance: LITHIUM CARBONATE
     Indication: Depression
     Dosage: FREQ:12 H;900 [MG/D (450-0-450) ]
     Route: 048
     Dates: start: 20210422, end: 20210731
  4. TAVOR (LORAZEPAM) [Concomitant]
     Active Substance: LORAZEPAM
     Indication: Depression
     Route: 048
     Dates: start: 20210421, end: 20210421
  5. FLECAINIDE [Concomitant]
     Active Substance: FLECAINIDE
     Indication: Tachycardia foetal
     Route: 048
     Dates: start: 20210701, end: 20210730
  6. AMIODARONE [Concomitant]
     Active Substance: AMIODARONE
     Indication: Tachycardia foetal
     Dosage: FREQ:{TOTAL};TWO APPLICATIONS.
     Route: 015
     Dates: start: 20210726, end: 20210730
  7. METOPROLOL SUCCINATE [Concomitant]
     Active Substance: METOPROLOL SUCCINATE
     Indication: Tachycardia foetal
     Dosage: 95 [MG/D (2X 47.5) ]
     Route: 048
     Dates: start: 20210701, end: 20210730

REACTIONS (1)
  - Foetal death [Unknown]
